FAERS Safety Report 7563122-2 (Version None)
Quarter: 2011Q2

REPORT INFORMATION
  Report Type: 
  Country: None (occurrence: None)
  Receive Date: 20110621
  Receipt Date: 20110621
  Transmission Date: 20111010
  Serious: Yes (Hospitalization)
  Sender: FDA-Public Use
  Company Number: None

PATIENT
  Sex: Female
  Weight: 52.3 kg

DRUGS (1)
  1. REBIF [Suspect]
     Indication: MULTIPLE SCLEROSIS
     Dosage: 0.8MCG/0.2ML M,W,F SQ
     Route: 058
     Dates: start: 20110502, end: 20110513

REACTIONS (2)
  - PARANOIA [None]
  - ANXIETY [None]
